FAERS Safety Report 6011691-6 (Version None)
Quarter: 2008Q4

REPORT INFORMATION
  Report Type: 
  Country: None (occurrence: None)
  Receive Date: 20081218
  Receipt Date: 19870403
  Transmission Date: 20090506
  Serious: Yes (Death)
  Sender: FDA-Public Use
  Company Number: US-ROCHE-870290007001

PATIENT
  Age: 44 Year
  Sex: Male

DRUGS (1)
  1. INTERFERON ALFA-2A [Suspect]
     Route: 030
     Dates: start: 19840621, end: 19840724

REACTIONS (2)
  - DISEASE PROGRESSION [None]
  - PNEUMONIA [None]
